FAERS Safety Report 20376258 (Version 1)
Quarter: 2022Q1

REPORT INFORMATION
  Report Type: Spontaneous
  Country: US (occurrence: None)
  Receive Date: 20220125
  Receipt Date: 20220125
  Transmission Date: 20220423
  Serious: Yes (Other)
  Sender: FDA-Public Use
  Company Number: None

PATIENT
  Age: 32 Year
  Sex: Female
  Weight: 66.15 kg

DRUGS (3)
  1. AIMOVIG [Suspect]
     Active Substance: ERENUMAB-AOOE
     Indication: Migraine
     Dosage: OTHER FREQUENCY : MONTH;?
     Route: 058
     Dates: start: 20211027, end: 20220125
  2. LORAZEPAM [Concomitant]
     Active Substance: LORAZEPAM
  3. LATUDA [Concomitant]
     Active Substance: LURASIDONE HYDROCHLORIDE

REACTIONS (5)
  - Swelling face [None]
  - Dyspnoea [None]
  - Dizziness [None]
  - Injection site pain [None]
  - Rash erythematous [None]

NARRATIVE: CASE EVENT DATE: 20211229
